FAERS Safety Report 21499022 (Version 1)
Quarter: 2022Q4

REPORT INFORMATION
  Report Type: Spontaneous
  Country: US (occurrence: US)
  Receive Date: 20221024
  Receipt Date: 20221024
  Transmission Date: 20230112
  Serious: Yes (Other)
  Sender: FDA-Public Use
  Company Number: US-Covis Pharma Europe B.V.-2022COV22006

PATIENT
  Age: 5 Year
  Sex: Male

DRUGS (1)
  1. ALVESCO [Suspect]
     Active Substance: CICLESONIDE
     Indication: Product used for unknown indication
     Dosage: 1 PUFF TWICE DAILY
     Route: 065

REACTIONS (2)
  - Asthma [Unknown]
  - Off label use [Unknown]
